FAERS Safety Report 15434977 (Version 1)
Quarter: 2018Q3

REPORT INFORMATION
  Report Type: Spontaneous
  Country: US (occurrence: US)
  Receive Date: 20180923
  Receipt Date: 20180923
  Transmission Date: 20181010
  Serious: Yes (Life-Threatening, Hospitalization, Disabling, Other)
  Sender: FDA-Public Use
  Company Number: None

PATIENT
  Age: 37 Year
  Sex: Male
  Weight: 84.15 kg

DRUGS (17)
  1. XANAX [Concomitant]
     Active Substance: ALPRAZOLAM
  2. MULTIVITAMIN [Concomitant]
     Active Substance: VITAMINS
  3. KEPPRA [Concomitant]
     Active Substance: LEVETIRACETAM
  4. VITAMIN B COMPLEX [Concomitant]
     Active Substance: CYANOCOBALAMIN\DEXPANTHENOL\NIACINAMIDE\PYRIDOXINE HYDROCHLORIDE\RIBOFLAVIN 5^-PHOSPHATE SODIUM\THIAMINE HYDROCHLORIDE\VITAMIN B COMPLEX
  5. VITAMIN D [Concomitant]
     Active Substance: CHOLECALCIFEROL
  6. FLONASE [Concomitant]
     Active Substance: FLUTICASONE PROPIONATE
  7. VIMPAT [Concomitant]
     Active Substance: LACOSAMIDE
  8. IBUPROFEN. [Concomitant]
     Active Substance: IBUPROFEN
  9. MUCUS RELIEVER [Concomitant]
  10. FOLIC ACID. [Concomitant]
     Active Substance: FOLIC ACID
  11. ZYRTEC [Concomitant]
     Active Substance: CETIRIZINE HYDROCHLORIDE
  12. LAMOTRIGINE. [Suspect]
     Active Substance: LAMOTRIGINE
     Indication: CONVULSION PROPHYLAXIS
     Dosage: ?          QUANTITY:1 TABLET(S);?
     Route: 048
  13. LEXAPRO [Concomitant]
     Active Substance: ESCITALOPRAM OXALATE
  14. VITAMIN C [Concomitant]
     Active Substance: ASCORBIC ACID
  15. ASPIRIN. [Concomitant]
     Active Substance: ASPIRIN
  16. NORCO5?325 [Concomitant]
  17. TYLENOL [Concomitant]
     Active Substance: ACETAMINOPHEN

REACTIONS (9)
  - Seizure [None]
  - Vomiting [None]
  - Concussion [None]
  - Fall [None]
  - Drug interaction [None]
  - Paraesthesia [None]
  - Presyncope [None]
  - Cerebrovascular accident [None]
  - Hemiplegia [None]

NARRATIVE: CASE EVENT DATE: 20180125
